FAERS Safety Report 7945828-6 (Version None)
Quarter: 2011Q4

REPORT INFORMATION
  Report Type: 
  Country: None (occurrence: None)
  Receive Date: 20111129
  Receipt Date: 20111117
  Transmission Date: 20120403
  Serious: Yes (Other)
  Sender: FDA-Public Use
  Company Number: PHHY2008ES13995

PATIENT
  Age: 29 Year
  Sex: Female

DRUGS (3)
  1. NEORAL [Suspect]
     Indication: BEHCET'S SYNDROME
     Dosage: 300 MG/DAY
     Route: 048
     Dates: end: 20080201
  2. ADALIMUMAB [Suspect]
     Indication: BEHCET'S SYNDROME
     Dosage: 40 MG EVERY 15 DAYS
     Route: 058
     Dates: start: 20080228
  3. PREDNISONE [Suspect]
     Indication: BEHCET'S SYNDROME
     Dosage: 10 MG/DAY
     Dates: start: 20040101

REACTIONS (1)
  - ALOPECIA [None]
